FAERS Safety Report 7683725-4 (Version None)
Quarter: 2011Q3

REPORT INFORMATION
  Report Type: 
  Country: None (occurrence: None)
  Receive Date: 20110803
  Receipt Date: 20110725
  Transmission Date: 20111222
  Serious: Yes (Other)
  Sender: FDA-Public Use
  Company Number: 18673

PATIENT
  Sex: Female
  Weight: 111.1313 kg

DRUGS (18)
  1. HYDROCHLOROTHIAZIDE [Concomitant]
  2. LANTUS [Concomitant]
  3. FLONASE [Concomitant]
  4. SYNTHROID [Concomitant]
  5. HUMALOG TID [Concomitant]
  6. CATAPRES TT 3(CLONDINE) [Concomitant]
  7. NORVASC [Concomitant]
  8. REMERON [Concomitant]
  9. GLASSIA [Suspect]
     Indication: ALPHA-1 ANTI-TRYPSIN DEFICIENCY
     Dosage: 6840MG, IV, WEEKLY
     Route: 042
     Dates: start: 20110120, end: 20110720
  10. NEURONTIN [Concomitant]
  11. PREVACID [Concomitant]
  12. VICODIN (ACETAMINOPHEN AND HYDROCODONE) [Concomitant]
  13. MELOXICAM [Concomitant]
  14. PROAIR (ALBUTEROL SULFATE) [Concomitant]
  15. LIVALO [Concomitant]
  16. VITAMIN D [Concomitant]
  17. MIRALAX (POLYETHYLENE) [Concomitant]
  18. LORAZEPAM [Concomitant]

REACTIONS (10)
  - MUSCLE SPASMS [None]
  - INFUSION RELATED REACTION [None]
  - MYALGIA [None]
  - CHILLS [None]
  - OXYGEN SATURATION DECREASED [None]
  - PYREXIA [None]
  - BLOOD PRESSURE INCREASED [None]
  - WHEEZING [None]
  - NAUSEA [None]
  - DYSPNOEA [None]
